FAERS Safety Report 6821692-3 (Version None)
Quarter: 2010Q3

REPORT INFORMATION
  Report Type: 
  Country: None (occurrence: None)
  Receive Date: 20100702
  Receipt Date: 20100625
  Transmission Date: 20110219
  Serious: Yes (Hospitalization)
  Sender: FDA-Public Use
  Company Number: 2010GW000500

PATIENT
  Age: 18 Year
  Sex: Female

DRUGS (1)
  1. FLECAINIDE ACETATE [Suspect]
     Indication: PRODUCT USED FOR UNKNOWN INDICATION
     Dosage: 1200 MG;X1;PO
     Route: 048

REACTIONS (13)
  - BLOOD PRESSURE IMMEASURABLE [None]
  - BRADYCARDIA [None]
  - CYANOSIS [None]
  - DYSPNOEA [None]
  - ELECTROCARDIOGRAM QRS COMPLEX PROLONGED [None]
  - INTENTIONAL OVERDOSE [None]
  - LOSS OF CONSCIOUSNESS [None]
  - MEAN ARTERIAL PRESSURE DECREASED [None]
  - MYOCARDIAL DEPRESSION [None]
  - OXYGEN SATURATION IMMEASURABLE [None]
  - PULSE ABSENT [None]
  - PUPIL FIXED [None]
  - TACHYCARDIA [None]
